FAERS Safety Report 7780748-1 (Version None)
Quarter: 2011Q3

REPORT INFORMATION
  Report Type: 
  Country: None (occurrence: None)
  Receive Date: 20110927
  Receipt Date: 20110802
  Transmission Date: 20111222
  Serious: No
  Sender: FDA-Public Use
  Company Number: US-BRISTOL-MYERS SQUIBB COMPANY-15921026

PATIENT
  Age: 52 Year
  Sex: Female
  Weight: 59 kg

DRUGS (6)
  1. FISH OIL [Concomitant]
  2. VITAMIN B COMPLEX CAP [Concomitant]
  3. ASPIRIN [Concomitant]
     Dosage: 325MG(2 PILLS). 81MG(1 PILL)
  4. MULTI-VITAMIN [Concomitant]
  5. AVAPRO [Suspect]
     Indication: HYPERTENSION
     Dosage: FOR ABT 3 WEEKS,INTER,RESTART, 1/4TAB FOR 2DAYS,1/2FOR2WEEKS,3/4TAB,1TAB FOR 1DAY
     Route: 048
     Dates: start: 20110527
  6. ALPRAZOLAM [Concomitant]
     Dosage: BREAKS HALF (0.25MG BID)

REACTIONS (2)
  - BURNING SENSATION [None]
  - PALMAR ERYTHEMA [None]
